FAERS Safety Report 5478576-5 (Version None)
Quarter: 2007Q4

REPORT INFORMATION
  Report Type: 
  Country: None (occurrence: None)
  Receive Date: 20071005
  Receipt Date: 20071002
  Transmission Date: 20080405
  Serious: Yes (Hospitalization)
  Sender: FDA-Public Use
  Company Number: JP-BRISTOL-MYERS SQUIBB COMPANY-13929344

PATIENT
  Age: 61 Year
  Sex: Female

DRUGS (8)
  1. TAXOL [Suspect]
     Indication: NON-SMALL CELL LUNG CANCER
     Route: 041
     Dates: start: 20070425, end: 20070904
  2. PARAPLATIN [Suspect]
     Indication: NON-SMALL CELL LUNG CANCER
     Route: 041
     Dates: start: 20070425, end: 20070904
  3. AVASTIN [Suspect]
     Indication: NON-SMALL CELL LUNG CANCER
     Route: 041
     Dates: start: 20070425, end: 20070904
  4. LOXONIN [Concomitant]
     Route: 048
     Dates: start: 20070422
  5. MUCODYNE [Concomitant]
     Route: 048
     Dates: start: 20070422
  6. MUCOSTA [Concomitant]
     Route: 048
     Dates: start: 20070422
  7. CODEINE PHOSPHATE [Concomitant]
     Route: 048
     Dates: start: 20070413
  8. LEVOFLOXACIN [Concomitant]
     Route: 048
     Dates: start: 20070925, end: 20070927

REACTIONS (1)
  - PNEUMONIA [None]
